FAERS Safety Report 9077156 (Version 1)
Quarter: 2013Q1

REPORT INFORMATION
  Report Type: Spontaneous
  Country: US (occurrence: US)
  Receive Date: 20130130
  Receipt Date: 20130130
  Transmission Date: 20140127
  Serious: Yes (Other)
  Sender: FDA-Public Use
  Company Number: US-BAYER-2013-010700

PATIENT
  Sex: Female

DRUGS (3)
  1. BETASERON [Suspect]
     Dosage: 0.25 MG, QOD
     Route: 058
  2. METHOTREXATE [Concomitant]
     Dosage: 2.5 MG, UNK
  3. PROVIGIL [Concomitant]
     Dosage: 100 MG, UNK

REACTIONS (7)
  - Memory impairment [Unknown]
  - Disturbance in attention [Unknown]
  - Muscle spasticity [Unknown]
  - Multiple sclerosis relapse [Unknown]
  - Urinary retention [Unknown]
  - Hypoaesthesia [None]
  - Paraesthesia [None]
